FAERS Safety Report 12147760 (Version 1)
Quarter: 2016Q1

REPORT INFORMATION
  Report Type: Spontaneous
  Country: US (occurrence: US)
  Receive Date: 20160304
  Receipt Date: 20160304
  Transmission Date: 20160526
  Serious: Yes (Hospitalization, Other)
  Sender: FDA-Public Use
  Company Number: US-WATSON-2016-03946

PATIENT
  Age: 22 Year
  Sex: Male

DRUGS (1)
  1. SULINDAC (WATSON LABORATORIES) [Suspect]
     Active Substance: SULINDAC
     Indication: PRODUCT USED FOR UNKNOWN INDICATION
     Dosage: 15 G, TOTAL
     Route: 048

REACTIONS (20)
  - Dry gangrene [Recovered/Resolved]
  - Oesophageal ulcer haemorrhage [Unknown]
  - Blood potassium increased [None]
  - Haemodialysis [None]
  - Oesophageal ulcer [Unknown]
  - Duodenal ulcer [Unknown]
  - Vasoconstriction [None]
  - Renal tubular necrosis [None]
  - Blood alkaline phosphatase increased [None]
  - Haemoglobin decreased [None]
  - Acute kidney injury [Recovered/Resolved]
  - Leukocytosis [Recovered/Resolved]
  - Aspartate aminotransferase increased [None]
  - Vomiting [Unknown]
  - Agitation [Unknown]
  - Dysphonia [Unknown]
  - Suicide attempt [Recovered/Resolved]
  - Hyperbilirubinaemia [Recovered/Resolved]
  - Intentional overdose [Recovered/Resolved]
  - Glucose urine present [None]
